FAERS Safety Report 19954925 (Version 1)
Quarter: 2021Q4

REPORT INFORMATION
  Report Type: Report from Study
  Country: US (occurrence: US)
  Receive Date: 20211013
  Receipt Date: 20211013
  Transmission Date: 20220303
  Serious: No
  Sender: FDA-Public Use
  Company Number: US-SUNOVION-2021SUN003892

PATIENT
  Age: 83 Year
  Sex: Male

DRUGS (2)
  1. KYNMOBI [Suspect]
     Active Substance: APOMORPHINE HYDROCHLORIDE
     Indication: Parkinson^s disease
     Dosage: 10 MG
     Route: 060
     Dates: start: 20211005
  2. CARBIDOPA AND LEVODOPA [Concomitant]
     Active Substance: CARBIDOPA\LEVODOPA
     Dosage: UNK
     Dates: start: 20211004

REACTIONS (5)
  - Somnolence [Unknown]
  - Dysstasia [Unknown]
  - Lethargy [Unknown]
  - Orthostatic hypotension [Recovered/Resolved]
  - Blood pressure decreased [Recovered/Resolved]

NARRATIVE: CASE EVENT DATE: 20211005
